FAERS Safety Report 11102587 (Version 1)
Quarter: 2015Q2

REPORT INFORMATION
  Report Type: Spontaneous
  Country: None (occurrence: None)
  Receive Date: 20150508
  Receipt Date: 20150508
  Transmission Date: 20150821
  Serious: No
  Sender: FDA-Public Use
  Company Number: None

PATIENT
  Sex: Female

DRUGS (1)
  1. ORENCIA [Suspect]
     Active Substance: ABATACEPT

REACTIONS (7)
  - Oedema peripheral [None]
  - Peripheral swelling [None]
  - Joint swelling [None]
  - Oedema [None]
  - Injection site pruritus [None]
  - Injection site erythema [None]
  - Face oedema [None]
